FAERS Safety Report 9531860 (Version 1)
Quarter: 2013Q3

REPORT INFORMATION
  Report Type: Spontaneous
  Country: US (occurrence: US)
  Receive Date: 20130918
  Receipt Date: 20130918
  Transmission Date: 20140515
  Serious: No
  Sender: FDA-Public Use
  Company Number: US-PFIZER INC-2013267342

PATIENT
  Age: 44 Year
  Sex: Female
  Weight: 58.96 kg

DRUGS (2)
  1. SERTRALINE HCL [Suspect]
     Indication: MAJOR DEPRESSION
     Dosage: 200 MG (BY TAKING TWO TABLETS OF 100MG TOGETHER), 1X/DAY
     Route: 048
  2. SERTRALINE HCL [Suspect]
     Indication: ANXIETY

REACTIONS (5)
  - Essential tremor [Unknown]
  - Impaired work ability [Unknown]
  - Weight decreased [Unknown]
  - Drug tolerance [Unknown]
  - Drug ineffective [Unknown]
